FAERS Safety Report 5616102-8 (Version None)
Quarter: 2008Q1

REPORT INFORMATION
  Report Type: 
  Country: None (occurrence: None)
  Receive Date: 20080201
  Receipt Date: 20080121
  Transmission Date: 20080703
  Serious: Yes (Other)
  Sender: FDA-Public Use
  Company Number: 2008001946

PATIENT
  Age: 47 Year
  Sex: Female
  Weight: 72.5755 kg

DRUGS (1)
  1. LISTERINE WHITENING QUICK DISSOLVING  STRIPS (NO ACTIVE INGREDIENT) [Suspect]
     Indication: DENTAL CARE
     Dosage: ORAL
     Route: 048
     Dates: start: 20080114

REACTIONS (2)
  - CAUSTIC INJURY [None]
  - SENSITIVITY OF TEETH [None]
